FAERS Safety Report 13151217 (Version 1)
Quarter: 2017Q1

REPORT INFORMATION
  Report Type: Spontaneous
  Country: US (occurrence: US)
  Receive Date: 20170125
  Receipt Date: 20170125
  Transmission Date: 20170428
  Serious: Yes (Disabling, Other)
  Sender: FDA-Public Use
  Company Number: None

PATIENT
  Age: 59 Year
  Sex: Male
  Weight: 79.45 kg

DRUGS (3)
  1. MAGNESIUM SUPPLEMENTS [Concomitant]
  2. LEVAQUIN [Suspect]
     Active Substance: LEVOFLOXACIN
     Indication: EPIDIDYMITIS
     Route: 048
     Dates: start: 201004
  3. NAPROXEN. [Suspect]
     Active Substance: NAPROXEN
     Route: 048

REACTIONS (13)
  - Dizziness [None]
  - Rash [None]
  - Tongue coated [None]
  - Contraindicated product administered [None]
  - Pain in extremity [None]
  - Urinary tract infection [None]
  - Alopecia [None]
  - Dupuytren^s contracture [None]
  - Fatigue [None]
  - Rhabdomyolysis [None]
  - Renal pain [None]
  - Pruritus [None]
  - Prostatitis [None]

NARRATIVE: CASE EVENT DATE: 20100404
